FAERS Safety Report 20367285 (Version 1)
Quarter: 2022Q1

REPORT INFORMATION
  Report Type: Report from Study
  Country: ES (occurrence: ES)
  Receive Date: 20220123
  Receipt Date: 20220123
  Transmission Date: 20220423
  Serious: Yes (Hospitalization, Other)
  Sender: FDA-Public Use
  Company Number: ES-TEVA-2021-ES-1889273

PATIENT
  Age: 50 Year
  Sex: Female

DRUGS (1)
  1. COPAXONE [Suspect]
     Active Substance: GLATIRAMER ACETATE
     Indication: Multiple sclerosis
     Dosage: COPAXONE 40 MG/ML
     Route: 058
     Dates: start: 20210303

REACTIONS (14)
  - Anaphylactic shock [Recovering/Resolving]
  - Hypotension [Recovering/Resolving]
  - Injection site erythema [Recovering/Resolving]
  - Injection site pain [Recovering/Resolving]
  - Injection site pruritus [Recovering/Resolving]
  - Injection site urticaria [Not Recovered/Not Resolved]
  - Urticaria [Recovering/Resolving]
  - Injection site rash [Recovering/Resolving]
  - Injection site induration [Recovering/Resolving]
  - Flatulence [Recovering/Resolving]
  - Extremity contracture [Recovering/Resolving]
  - Injection site atrophy [Recovering/Resolving]
  - Mastocytosis [Recovering/Resolving]
  - Induration [Recovering/Resolving]

NARRATIVE: CASE EVENT DATE: 20210101
